FAERS Safety Report 4738498-1 (Version None)
Quarter: 2005Q3

REPORT INFORMATION
  Report Type: 
  Country: None (occurrence: None)
  Receive Date: 20050808
  Receipt Date: 20050808
  Transmission Date: 20060218
  Serious: No
  Sender: FDA-Public Use
  Company Number: None

PATIENT
  Age: 70 Year
  Sex: Female

DRUGS (2)
  1. VYTORIN [Suspect]
     Dosage: TABLET
  2. VYTORIN [Suspect]
     Dosage: TABLET

REACTIONS (5)
  - DIZZINESS [None]
  - HYPERTENSION [None]
  - INTRACRANIAL ANEURYSM [None]
  - MEDICATION ERROR [None]
  - RASH [None]
